FAERS Safety Report 13648182 (Version 4)
Quarter: 2017Q3

REPORT INFORMATION
  Report Type: Report from Study
  Country: US (occurrence: US)
  Receive Date: 20170613
  Receipt Date: 20170810
  Transmission Date: 20171127
  Serious: Yes (Hospitalization, Other)
  Sender: FDA-Public Use
  Company Number: US-OTSUKA-2017_012911

PATIENT
  Age: 61 Year
  Sex: Male

DRUGS (1)
  1. ARIPIPRAZOLE. [Suspect]
     Active Substance: ARIPIPRAZOLE
     Indication: PRODUCT USED FOR UNKNOWN INDICATION
     Dosage: UNK, MONTHLY
     Route: 030
     Dates: start: 2013

REACTIONS (7)
  - Confusional state [Unknown]
  - General physical condition abnormal [Unknown]
  - Dementia [Unknown]
  - Dehydration [Unknown]
  - Chest pain [Unknown]
  - Paraesthesia [Unknown]
  - Intentional product use issue [Unknown]
